FAERS Safety Report 21915340 (Version 1)
Quarter: 2023Q1

REPORT INFORMATION
  Report Type: Spontaneous
  Country: CH (occurrence: CH)
  Receive Date: 20230126
  Receipt Date: 20230126
  Transmission Date: 20230418
  Serious: Yes (Life-Threatening, Hospitalization, Other)
  Sender: FDA-Public Use
  Company Number: CH-SM-2022-20248

PATIENT
  Age: 71 Year
  Sex: Female

DRUGS (26)
  1. CEFEPIME HYDROCHLORIDE [Suspect]
     Active Substance: CEFEPIME HYDROCHLORIDE
     Dosage: 6 G, QD
     Route: 042
     Dates: start: 20220904, end: 20220908
  2. MORPHINE HYDROCHLORIDE [Suspect]
     Active Substance: MORPHINE HYDROCHLORIDE
     Indication: Pain
     Dosage: UNK (-2 MG AT DRESSING CHANGE)
     Route: 042
     Dates: start: 20220827, end: 20220913
  3. ENOXAPARIN SODIUM [Suspect]
     Active Substance: ENOXAPARIN SODIUM
     Dosage: 40 MG, QD
     Route: 058
     Dates: start: 20220820, end: 20220901
  4. ENOXAPARIN SODIUM [Suspect]
     Active Substance: ENOXAPARIN SODIUM
     Dosage: 80 MG, BID
     Route: 058
     Dates: start: 20220902, end: 20220907
  5. AMOXICILLIN\CLAVULANATE POTASSIUM [Concomitant]
     Active Substance: AMOXICILLIN\CLAVULANATE POTASSIUM
     Dosage: 2.2 G, 1X
     Dates: start: 20220818, end: 20220818
  6. CEFAZOLIN [Concomitant]
     Active Substance: CEFAZOLIN
     Indication: Erysipelas
     Dosage: 2 G, 1X
     Dates: start: 20220818, end: 20220818
  7. AMOXICILLIN\CLAVULANATE POTASSIUM [Concomitant]
     Active Substance: AMOXICILLIN\CLAVULANATE POTASSIUM
     Dosage: 1 DF
     Dates: start: 20220818, end: 20220828
  8. CLINDAMYCIN [Concomitant]
     Active Substance: CLINDAMYCIN
     Dosage: 1 DF
     Dates: start: 20220818, end: 20220823
  9. CLINDAMYCIN [Concomitant]
     Active Substance: CLINDAMYCIN
     Dosage: 1 DF
     Dates: start: 20220827, end: 20220828
  10. PIPERACILLIN SODIUM\TAZOBACTAM SODIUM [Concomitant]
     Active Substance: PIPERACILLIN SODIUM\TAZOBACTAM SODIUM
     Dosage: 1 DF
     Dates: start: 20220828, end: 20220904
  11. MEROPENEM [Concomitant]
     Active Substance: MEROPENEM
     Dosage: 1 DF
     Dates: start: 20220908, end: 20220915
  12. TENORMIN [Concomitant]
     Active Substance: ATENOLOL
     Dosage: 25 MG
     Route: 048
     Dates: end: 20220818
  13. CANDESARTAN [Concomitant]
     Active Substance: CANDESARTAN
     Dosage: 16 MG
     Route: 048
  14. PANTOPRAZOLE [Concomitant]
     Active Substance: PANTOPRAZOLE
     Dosage: 20 MG
     Route: 048
  15. NIMESULIDE [Concomitant]
     Active Substance: NIMESULIDE
     Dosage: 100 MG
     Route: 048
     Dates: end: 20220818
  16. DAFALGAN [Concomitant]
     Active Substance: ACETAMINOPHEN
     Dosage: 500 MG
     Dates: start: 20220827
  17. BETAHISTIN MEPHA [Concomitant]
     Dosage: 16 MG
     Dates: start: 20220829
  18. NOVALGIN (METAMIZOLE SODIUM) [Concomitant]
     Active Substance: METAMIZOLE SODIUM
     Dosage: 500 MG
     Dates: start: 20220831
  19. AMLODIPINE MESYLATE [Concomitant]
     Active Substance: AMLODIPINE MESYLATE
     Dosage: 1 DF
     Dates: start: 20220902
  20. LAXIPEG [Concomitant]
     Dosage: 1 DF, PRN
     Dates: start: 20220818
  21. VALVERDE SCHLAF [Concomitant]
     Dosage: 1 DF, PRN
     Dates: start: 20220818
  22. TRAMADOL [Concomitant]
     Active Substance: TRAMADOL
     Dosage: 1 DF, PRN
     Dates: start: 20220902
  23. ONDANSETRON [Concomitant]
     Active Substance: ONDANSETRON
     Dosage: 1 DF, PRN
  24. PRIMPERAN [Concomitant]
     Active Substance: METOCLOPRAMIDE HYDROCHLORIDE
     Dosage: 1 DF, PRN
  25. SOLU-MEDROL [Concomitant]
     Active Substance: METHYLPREDNISOLONE SODIUM SUCCINATE
     Dosage: 1 DF, PRN
     Dates: start: 20220906
  26. CLEMASTINE FUMARATE [Concomitant]
     Active Substance: CLEMASTINE FUMARATE
     Dosage: 1 DF, PRN
     Dates: start: 20220906

REACTIONS (4)
  - Disturbance in attention [Recovering/Resolving]
  - Drug level increased [Recovered/Resolved]
  - Toxicity to various agents [Recovered/Resolved]
  - Upper gastrointestinal haemorrhage [Recovering/Resolving]

NARRATIVE: CASE EVENT DATE: 20220907
